FAERS Safety Report 8573873 (Version 2)
Quarter: 2013Q2

REPORT INFORMATION
  Report Type: Spontaneous
  Country: US (occurrence: US)
  Receive Date: 20120522
  Receipt Date: 20130425
  Transmission Date: 20140414
  Serious: No
  Sender: FDA-Public Use
  Company Number: US-ASTRAZENECA-2011SE68614

PATIENT
  Age: 53 Year
  Sex: Male

DRUGS (2)
  1. PRILOSEC [Suspect]
     Route: 048
  2. NEXIUM [Suspect]
     Route: 048

REACTIONS (5)
  - Gastrooesophageal reflux disease [Unknown]
  - Hypophagia [Unknown]
  - Burning sensation [Unknown]
  - Vomiting [Unknown]
  - Drug ineffective [Unknown]
